FAERS Safety Report 5276248-3 (Version None)
Quarter: 2007Q1

REPORT INFORMATION
  Report Type: 
  Country: None (occurrence: None)
  Receive Date: 20070326
  Receipt Date: 20070312
  Transmission Date: 20070707
  Serious: No
  Sender: FDA-Public Use
  Company Number: US-ELI_LILLY_AND_COMPANY-US200703002498

PATIENT
  Age: 47 Year
  Sex: Female

DRUGS (5)
  1. CYMBALTA [Suspect]
     Dosage: 60 MG, DAILY (1/D)
     Route: 048
     Dates: start: 20070101, end: 20070301
  2. PREMARIN [Concomitant]
  3. ZYRTEC [Concomitant]
  4. ELAVIL [Concomitant]
     Dates: end: 20070101
  5. ELAVIL [Concomitant]
     Dosage: UNK, UNK
     Dates: start: 20070101

REACTIONS (2)
  - ABDOMINAL PAIN LOWER [None]
  - HEPATIC ENZYME INCREASED [None]
